FAERS Safety Report 9413415 (Version 6)
Quarter: 2015Q3

REPORT INFORMATION
  Report Type: Spontaneous
  Country: JP (occurrence: None)
  Receive Date: 20130717
  Receipt Date: 20150831
  Transmission Date: 20151125
  Serious: Yes (Hospitalization, Other)
  Sender: FDA-Public Use
  Company Number: 2009JP004431

PATIENT
  Age: 59 Year
  Sex: Female
  Weight: 58 kg

DRUGS (26)
  1. LASIX [Concomitant]
     Active Substance: FUROSEMIDE
  2. COCARL (ACETAMINOPHEN) [Concomitant]
  3. CARBOCAINE [Concomitant]
     Active Substance: MEPIVACAINE HYDROCHLORIDE
  4. BREDININ (MIZORIBINE) [Concomitant]
     Active Substance: MIZORIBINE
  5. PROGRAF [Suspect]
     Active Substance: TACROLIMUS\TACROLIMUS ANHYDROUS
     Indication: LUPUS NEPHRITIS
     Dosage: 3 MG, ONCE DAILY (START DATE: 08/03/2007)
     Route: 048
     Dates: end: 20080918
  6. PREDNISOLONE (PREDNISOLONE) [Suspect]
     Active Substance: PREDNISOLONE
     Indication: LUPUS NEPHRITIS
     Route: 048
  7. CARDENALIN [Concomitant]
     Active Substance: DOXAZOSIN MESYLATE
  8. TAKEPRON (LANSOPRAZOLE) [Concomitant]
     Active Substance: LANSOPRAZOLE
  9. CALCIUM CARBONATE. [Concomitant]
     Active Substance: CALCIUM CARBONATE
  10. LEPETAN [Concomitant]
     Active Substance: BUPRENORPHINE HYDROCHLORIDE
  11. EQUA (VILDAGLIPTIN) [Concomitant]
     Active Substance: VILDAGLIPTIN
  12. CELLCEPT [Concomitant]
     Active Substance: MYCOPHENOLATE MOFETIL\MYCOPHENOLATE MOFETIL HYDROCHLORIDE
  13. GASTER D (FAMOTIDINE) [Concomitant]
  14. ZYLORIC [Concomitant]
     Active Substance: ALLOPURINOL
  15. CEFZON [Concomitant]
     Active Substance: CEFDINIR
  16. SEISHOKU (ISOTONIC SODIUM CHLORIDE SOLUTION) [Concomitant]
  17. LIPITOR [Concomitant]
     Active Substance: ATORVASTATIN CALCIUM
  18. ATELEC [Concomitant]
     Active Substance: CILNIDIPINE
  19. BAKTAR [Concomitant]
     Active Substance: SULFAMETHOXAZOLE\TRIMETHOPRIM
  20. MOHRUS [Concomitant]
     Active Substance: KETOPROFEN
  21. XYLOCAINE [Concomitant]
     Active Substance: LIDOCAINE HYDROCHLORIDE
  22. MIRCERA (METHOXY POLYETHYLENE GLYCOL-EPOETIN BETA) [Concomitant]
  23. CORTIL (HYDROCORTISONE) [Concomitant]
  24. BLOPRESS [Concomitant]
     Active Substance: CANDESARTAN CILEXETIL
  25. ANAPEINE (ROPIVACAINE HYDROCHLORIDE HYDRATE) [Concomitant]
  26. FOSAMAC [Concomitant]
     Active Substance: ALENDRONATE SODIUM

REACTIONS (12)
  - Cystitis [None]
  - Nephrogenic anaemia [None]
  - Hypertension [None]
  - Blood glucose increased [None]
  - Bone density decreased [None]
  - Anomalous arrangement of pancreaticobiliary duct [None]
  - Enterocolitis infectious [None]
  - Upper respiratory tract inflammation [None]
  - Enterocolitis [None]
  - Pituitary tumour benign [None]
  - Diabetes mellitus [None]
  - Intervertebral disc protrusion [None]

NARRATIVE: CASE EVENT DATE: 20070909
